FAERS Safety Report 5100011-7 (Version None)
Quarter: 2006Q3

REPORT INFORMATION
  Report Type: 
  Country: None (occurrence: None)
  Receive Date: 20060906
  Receipt Date: 20060906
  Transmission Date: 20061208
  Serious: Yes (Life-Threatening)
  Sender: FDA-Public Use
  Company Number: None

PATIENT
  Sex: Male

DRUGS (1)
  1. NEUPOGEN [Suspect]
     Dosage: 1 DOSAGE
     Dates: start: 20060712, end: 20060712

REACTIONS (6)
  - CONVULSION [None]
  - DIZZINESS [None]
  - HAEMOPTYSIS [None]
  - HAEMORRHAGE [None]
  - HEADACHE [None]
  - OESOPHAGEAL RUPTURE [None]
